FAERS Safety Report 7655008-X (Version None)
Quarter: 2011Q3

REPORT INFORMATION
  Report Type: 
  Country: None (occurrence: None)
  Receive Date: 20110804
  Receipt Date: 20110713
  Transmission Date: 20111222
  Serious: No
  Sender: FDA-Public Use
  Company Number: US-B.I. PHARMACEUTICALS,INC./RIDGEFIELD-2011-BP-17727BP

PATIENT
  Age: 58 Year

DRUGS (2)
  1. VICTOZA [Suspect]
  2. TRADJENTA [Suspect]

REACTIONS (1)
  - GASTROENTERITIS [None]
